FAERS Safety Report 5697615-X (Version None)
Quarter: 2008Q2

REPORT INFORMATION
  Report Type: 
  Country: None (occurrence: None)
  Receive Date: 20080408
  Receipt Date: 20080328
  Transmission Date: 20081010
  Serious: Yes (Congenital Anomaly)
  Sender: FDA-Public Use
  Company Number: US-ROCHE-454539

PATIENT
  Sex: Male
  Weight: 4.6 kg

DRUGS (5)
  1. ACCUTANE [Suspect]
     Indication: ACNE
     Dates: start: 19870101, end: 19870101
  2. ACCUTANE [Suspect]
     Dosage: 40 MG DAILY THEN ADD 40MG MORE EVERY OTHER DAY
     Dates: start: 19940713, end: 19940823
  3. ACCUTANE [Suspect]
     Dates: start: 19940824, end: 19941228
  4. ACCUTANE [Suspect]
     Dates: start: 20000101, end: 20000215
  5. ACCUTANE [Suspect]
     Dates: start: 20000217, end: 20000601

REACTIONS (1)
  - TRANSPOSITION OF THE GREAT VESSELS [None]
